FAERS Safety Report 17055158 (Version 2)
Quarter: 2019Q4

REPORT INFORMATION
  Report Type: Report from Study
  Country: AT (occurrence: AT)
  Receive Date: 20191120
  Receipt Date: 20191219
  Transmission Date: 20200122
  Serious: Yes (Hospitalization)
  Sender: FDA-Public Use
  Company Number: AT-MYLANLABS-2019M1111988

PATIENT
  Age: 70 Year
  Sex: Female
  Weight: 52 kg

DRUGS (17)
  1. ANASTROZOLE. [Suspect]
     Active Substance: ANASTROZOLE
     Indication: HER-2 POSITIVE BREAST CANCER
     Dosage: 1 MILLIGRAM, QD
     Route: 048
     Dates: start: 20181009
  2. CIPRALEX [Concomitant]
     Active Substance: ESCITALOPRAM OXALATE
     Dosage: UNK
     Route: 065
     Dates: start: 20190515
  3. NOVALGIN (METAMIZOLE SODIUM) [Concomitant]
     Active Substance: METAMIZOLE SODIUM
     Dosage: UNK
     Route: 065
     Dates: start: 20180807
  4. TRITTICO [Concomitant]
     Active Substance: TRAZODONE HYDROCHLORIDE
     Dosage: UNK
     Route: 065
     Dates: start: 20180615
  5. TRASTUZUMAB. [Suspect]
     Active Substance: TRASTUZUMAB
     Indication: HER-2 POSITIVE BREAST CANCER
     Dosage: MOST RECENT DOSE PRIOR TO THE EVENT: 21/AUG/2018
     Route: 041
     Dates: start: 20180731
  6. EXEMESTANE. [Suspect]
     Active Substance: EXEMESTANE
     Indication: HER-2 POSITIVE BREAST CANCER
     Dosage: IN MAY/2019, MOST RECENT DOSE
     Route: 048
     Dates: start: 201904
  7. LAEVOLAC [Concomitant]
     Active Substance: LACTULOSE
     Indication: CONSTIPATION
     Dosage: UNK
     Route: 065
     Dates: start: 20181227
  8. PERTUZUMAB. [Suspect]
     Active Substance: PERTUZUMAB
     Indication: HER-2 POSITIVE BREAST CANCER
     Dosage: MOST RECENT DOSE PRIOR TO THE EVENT: 21/AUG/2018
     Route: 042
     Dates: start: 20180731, end: 20180821
  9. XANOR [Concomitant]
     Active Substance: ALPRAZOLAM
     Dosage: UNK
     Route: 065
     Dates: start: 20180615
  10. ZYRTEC [Concomitant]
     Active Substance: CETIRIZINE HYDROCHLORIDE
     Indication: PRURITUS
     Dosage: UNK
     Route: 065
     Dates: start: 20181227
  11. DAFLON                             /01026201/ [Concomitant]
     Active Substance: DIOSMIN\HESPERIDIN
     Indication: OEDEMA PERIPHERAL
     Dosage: UNK
     Route: 065
  12. PASPERTIN                          /00041902/ [Concomitant]
     Active Substance: METOCLOPRAMIDE HYDROCHLORIDE
     Dosage: UNK
     Route: 065
     Dates: start: 20180807
  13. PANTOLOC                           /01263201/ [Concomitant]
     Active Substance: PANTOPRAZOLE SODIUM
     Dosage: UNK
     Route: 065
  14. LOVENOX [Concomitant]
     Active Substance: ENOXAPARIN SODIUM
     Dosage: UNK
     Route: 065
     Dates: start: 20180828
  15. FENISTIL [Concomitant]
     Active Substance: DIMETHINDENE
     Dosage: UNK
     Route: 065
     Dates: start: 20181002
  16. ULSAL [Concomitant]
     Active Substance: RANITIDINE HYDROCHLORIDE
     Dosage: UNK
     Route: 065
     Dates: start: 20181002, end: 20190401
  17. LETROZOLE. [Suspect]
     Active Substance: LETROZOLE
     Indication: HER-2 POSITIVE BREAST CANCER
     Dosage: 2.5 MILLIGRAM, QD
     Route: 048
     Dates: start: 20181205

REACTIONS (5)
  - Somnolence [Not Recovered/Not Resolved]
  - Nausea [Recovering/Resolving]
  - Rash [Recovering/Resolving]
  - Headache [Not Recovered/Not Resolved]
  - Vertigo [Recovering/Resolving]

NARRATIVE: CASE EVENT DATE: 20190415
